FAERS Safety Report 13670539 (Version 2)
Quarter: 2020Q3

REPORT INFORMATION
  Report Type: Spontaneous
  Country: FR (occurrence: FR)
  Receive Date: 20170620
  Receipt Date: 20200701
  Transmission Date: 20201102
  Serious: Yes (Hospitalization)
  Sender: FDA-Public Use
  Company Number: PHHY2017FR088876

PATIENT
  Age: 9 Year
  Sex: Female

DRUGS (16)
  1. CICLOSPORIN [Suspect]
     Active Substance: CYCLOSPORINE
     Indication: BONE GRAFT
     Dosage: UNK
     Route: 048
  2. CORTANCYL [Suspect]
     Active Substance: PREDNISONE
     Indication: BONE GRAFT
     Dosage: NON COMMUNIQU?E
     Route: 048
     Dates: start: 201704
  3. ZOVIRAX [Suspect]
     Active Substance: ACYCLOVIR
     Indication: ANTIVIRAL PROPHYLAXIS
     Dosage: NON COMMUNIQU?E
     Route: 065
     Dates: start: 20170506
  4. VFEND [Suspect]
     Active Substance: VORICONAZOLE
     Indication: PROPHYLAXIS
     Dosage: NON COMMUNIQU?E
     Route: 065
     Dates: start: 20170429
  5. MABTHERA [Suspect]
     Active Substance: RITUXIMAB
     Dosage: NON COMMUNIQU?E
     Route: 065
     Dates: end: 201704
  6. BACTRIM [Suspect]
     Active Substance: SULFAMETHOXAZOLE\TRIMETHOPRIM
     Indication: PNEUMOCYSTIS JIROVECII PNEUMONIA
     Dosage: NON COMMUNIQU?E
     Route: 065
     Dates: start: 20170502, end: 201706
  7. CORTANCYL [Suspect]
     Active Substance: PREDNISONE
     Indication: TRANSPLANT
  8. ARAVA [Suspect]
     Active Substance: LEFLUNOMIDE
     Indication: PRODUCT USED FOR UNKNOWN INDICATION
     Dosage: UNK
     Route: 065
     Dates: end: 20170531
  9. URSOFALK [Suspect]
     Active Substance: URSODIOL
     Indication: PRODUCT USED FOR UNKNOWN INDICATION
     Dosage: UNK
     Route: 048
     Dates: start: 20170322
  10. INEXIUM [Suspect]
     Active Substance: ESOMEPRAZOLE
     Indication: PRODUCT USED FOR UNKNOWN INDICATION
     Dosage: NON COMMUNIQU?E
     Route: 048
     Dates: start: 20170324
  11. LOXEN (NICARDIPINE HYDROCHLORIDE) [Suspect]
     Active Substance: NICARDIPINE HYDROCHLORIDE
     Indication: HYPERTENSION
     Dosage: NON COMMUNIQU?E
     Route: 065
     Dates: start: 20170510
  12. CIDOFOVIR ANHYDROUS [Suspect]
     Active Substance: CIDOFOVIR
     Indication: CYTOMEGALOVIRUS INFECTION
     Dosage: 3 DF, UNK (3 DOSES LES 11, 18 ET 25 MAI 2017)
     Route: 065
     Dates: start: 20170511, end: 20170525
  13. ARAVA [Suspect]
     Active Substance: LEFLUNOMIDE
     Dosage: NON COMMUNIQU?E
     Route: 065
     Dates: end: 20170531
  14. ORACILLINE [Suspect]
     Active Substance: PENICILLIN V
     Indication: PRODUCT USED FOR UNKNOWN INDICATION
     Dosage: NON COMMUNIQU?E
     Route: 065
     Dates: start: 20170502
  15. FLAGYL [Suspect]
     Active Substance: METRONIDAZOLE\METRONIDAZOLE HYDROCHLORIDE
     Indication: INFECTION
     Dosage: NON COMMUNIQU?E
     Route: 065
     Dates: start: 20170524, end: 201706
  16. MABTHERA [Suspect]
     Active Substance: RITUXIMAB
     Indication: PRODUCT USED FOR UNKNOWN INDICATION
     Dosage: UNK
     Route: 065
     Dates: end: 201704

REACTIONS (1)
  - Neutropenia [Recovered/Resolved]

NARRATIVE: CASE EVENT DATE: 20170529
